FAERS Safety Report 4274757-7 (Version None)
Quarter: 2004Q1

REPORT INFORMATION
  Report Type: 
  Country: None (occurrence: None)
  Receive Date: 20040116
  Receipt Date: 20040105
  Transmission Date: 20041129
  Serious: Yes (Hospitalization)
  Sender: FDA-Public Use
  Company Number: 2003-BP-10700AU

PATIENT
  Age: 70 Year
  Sex: Female

DRUGS (1)
  1. MICARDIS HCT [Suspect]
     Indication: HYPERTENSION
     Dosage: 80/12.5MG (RT, 1 DAILY; 80/12.5MG) PO
     Route: 048
     Dates: start: 20030630, end: 20031208

REACTIONS (3)
  - DISORIENTATION [None]
  - DIZZINESS [None]
  - NAUSEA [None]
